FAERS Safety Report 7443533-6 (Version None)
Quarter: 2011Q2

REPORT INFORMATION
  Report Type: 
  Country: None (occurrence: None)
  Receive Date: 20110428
  Receipt Date: 20101220
  Transmission Date: 20111010
  Serious: Yes (Hospitalization)
  Sender: FDA-Public Use
  Company Number: US-BAYER-201037666NA

PATIENT
  Age: 20 Year
  Sex: Female
  Weight: 65.76 kg

DRUGS (6)
  1. YASMIN [Suspect]
     Dosage: UNK
     Dates: end: 20040204
  2. YASMIN [Suspect]
     Indication: PREMENSTRUAL SYNDROME
     Dosage: UNK
     Dates: start: 20020306, end: 20040101
  3. DROSPIRENONE AND ETHINYL ESTRADIOL [Suspect]
     Indication: ACNE
  4. ADVIL [Concomitant]
  5. YAZ [Suspect]
  6. PONSTEL [Concomitant]

REACTIONS (6)
  - MUSCULOSKELETAL PAIN [None]
  - OEDEMA PERIPHERAL [None]
  - SUBCLAVIAN VEIN THROMBOSIS [None]
  - SKIN DISCOLOURATION [None]
  - FATIGUE [None]
  - PAIN IN EXTREMITY [None]
